FAERS Safety Report 9092607 (Version 1)
Quarter: 2013Q1

REPORT INFORMATION
  Report Type: Spontaneous
  Country: US (occurrence: None)
  Receive Date: 20130213
  Receipt Date: 20130213
  Transmission Date: 20140127
  Serious: Yes (Other)
  Sender: FDA-Public Use
  Company Number: None

PATIENT
  Age: 47 Year
  Sex: Male

DRUGS (1)
  1. AVALOX [Suspect]

REACTIONS (6)
  - Uveitis [None]
  - Visual acuity reduced [None]
  - Intraocular pressure increased [None]
  - Atrophy [None]
  - Iris disorder [None]
  - Pigmentation disorder [None]
